FAERS Safety Report 15435167 (Version 1)
Quarter: 2018Q3

REPORT INFORMATION
  Report Type: Spontaneous
  Country: US (occurrence: US)
  Receive Date: 20180924
  Receipt Date: 20180924
  Transmission Date: 20181010
  Serious: Yes (Life-Threatening, Hospitalization, Other)
  Sender: FDA-Public Use
  Company Number: None

PATIENT
  Age: 67 Year
  Sex: Male
  Weight: 63 kg

DRUGS (8)
  1. XELJANZ XR [Concomitant]
     Active Substance: TOFACITINIB CITRATE
  2. CENTRUM VITAMINS [Concomitant]
  3. GABAPENTIN. [Concomitant]
     Active Substance: GABAPENTIN
  4. OMEPRAZOLE. [Concomitant]
     Active Substance: OMEPRAZOLE
  5. PLAQUENIL [Concomitant]
     Active Substance: HYDROXYCHLOROQUINE SULFATE
  6. PROLIA [Suspect]
     Active Substance: DENOSUMAB
     Indication: BONE DENSITY ABNORMAL
     Dosage: ?          QUANTITY:1 INJECTION(S);?
     Route: 058
     Dates: start: 20180829, end: 20180830
  7. PREDNISONE. [Concomitant]
     Active Substance: PREDNISONE
  8. BENICAR [Concomitant]
     Active Substance: OLMESARTAN MEDOXOMIL

REACTIONS (9)
  - Dysuria [None]
  - Diarrhoea [None]
  - Dyspnoea [None]
  - Fatigue [None]
  - Influenza like illness [None]
  - Decreased appetite [None]
  - Blood magnesium decreased [None]
  - Muscular weakness [None]
  - Blood calcium decreased [None]

NARRATIVE: CASE EVENT DATE: 20180829
